FAERS Safety Report 9563596 (Version 1)
Quarter: 2013Q1

REPORT INFORMATION
  Report Type: Spontaneous
  Country: US (occurrence: None)
  Receive Date: 20121218
  Receipt Date: 20121218
  Transmission Date: 20140127
  Serious: Yes (Hospitalization)
  Sender: FDA-Public Use
  Company Number: PHEH2012US002927

PATIENT
  Age: 87 Year
  Sex: Female

DRUGS (16)
  1. ZOMETA (ZOLEDRONATE) UNKNOWN [Suspect]
  2. REVLIMID (LENALIDOMIDE) [Suspect]
     Indication: PLASMA CELL MYELOMA
     Dosage: 10 MG, DAILY FOR 31 DAYS 7 DAYS OFF, ORAL
     Route: 048
     Dates: start: 20110829
  3. ALKERAN [Suspect]
     Indication: PLASMA CELL MYELOMA
     Route: 048
  4. NEXIUM (ESOMEPRAZOLE MAGNESIUM) [Concomitant]
  5. PRAVASTATIN SODIUM (PRAVASTATIN SODIUM) [Concomitant]
  6. XANAX (ALPRAZOLAM) [Concomitant]
  7. AMBIEN (ZOLPIDEM TARTRATE) [Concomitant]
  8. METOPROLOL SUCCINATE (METOPROLOL SUCCINATE) [Concomitant]
  9. AMLODIPINE BESYLATE (AMLODIPINE BESILATE) [Concomitant]
  10. LORTAB (HYDROCODONE BITARTRATE, PARACETAMOL) [Concomitant]
  11. ROBAXIN (METHOCARBAMOL) [Concomitant]
  12. EVISTA (RALOXIFENE HYDROCHLORIDE) [Concomitant]
  13. PROMETHAZINE (PROMETHAZINE) [Concomitant]
  14. ZOFRAN (ONDANSETRON HYDROCHLORIDE) [Concomitant]
  15. NYSTATIN (NYSTATIN) [Concomitant]
  16. PREDNISONE (PREDNISONE) [Concomitant]

REACTIONS (3)
  - Blood calcium decreased [None]
  - Platelet count decreased [None]
  - Diarrhoea [None]
